FAERS Safety Report 5355942-X (Version None)
Quarter: 2007Q2

REPORT INFORMATION
  Report Type: 
  Country: None (occurrence: None)
  Receive Date: 20070613
  Receipt Date: 20070605
  Transmission Date: 20071010
  Serious: Yes (Other)
  Sender: FDA-Public Use
  Company Number: PHBS2007JP01219

PATIENT
  Age: 35 Year
  Sex: Female

DRUGS (1)
  1. DICLOFENAC SODIUM [Suspect]

REACTIONS (2)
  - MUCOSAL EROSION [None]
  - STOMATITIS [None]
